FAERS Safety Report 5064610-3 (Version None)
Quarter: 2006Q3

REPORT INFORMATION
  Report Type: 
  Country: None (occurrence: None)
  Receive Date: 20060728
  Receipt Date: 20060717
  Transmission Date: 20061208
  Serious: Yes (Other)
  Sender: FDA-Public Use
  Company Number: GBWYE229818JUL06

PATIENT
  Age: 5 Year
  Sex: Female

DRUGS (3)
  1. ENBREL [Suspect]
     Indication: JUVENILE ARTHRITIS
     Route: 058
     Dates: start: 20050316, end: 20050923
  2. METHOTREXATE [Suspect]
  3. FOLIC ACID [Concomitant]
     Route: 058
     Dates: start: 20040501

REACTIONS (2)
  - SCAB [None]
  - VARICELLA [None]
